FAERS Safety Report 8922636 (Version 1)
Quarter: 2012Q4

REPORT INFORMATION
  Report Type: 
  Country: US (occurrence: US)
  Receive Date: 20121123
  Receipt Date: 20121123
  Transmission Date: 20130627
  Serious: Yes (Hospitalization, Other)
  Sender: FDA-Public Use
  Company Number: US-PFIZER INC-2012291911

PATIENT

DRUGS (1)
  1. VFEND [Suspect]
     Indication: FUNGAL MENINGITIS
     Dosage: UNK
     Dates: start: 2012

REACTIONS (1)
  - Myocardial infarction [Recovered/Resolved]
